FAERS Safety Report 5443509-4 (Version None)
Quarter: 2007Q3

REPORT INFORMATION
  Report Type: 
  Country: None (occurrence: None)
  Receive Date: 20070905
  Receipt Date: 20070827
  Transmission Date: 20080115
  Serious: Yes (Other)
  Sender: FDA-Public Use
  Company Number: US-ELI_LILLY_AND_COMPANY-US200708006724

PATIENT
  Age: 40 Year
  Sex: Female

DRUGS (2)
  1. BYETTA [Suspect]
     Dosage: 10 UG, UNKNOWN
     Route: 051
     Dates: start: 20070701, end: 20070801
  2. ASPIRIN [Concomitant]
     Dosage: 81 MG, DAILY (1/D)

REACTIONS (1)
  - VAGINAL HAEMORRHAGE [None]
